FAERS Safety Report 6695016-9 (Version None)
Quarter: 2010Q2

REPORT INFORMATION
  Report Type: 
  Country: None (occurrence: None)
  Receive Date: 20100421
  Receipt Date: 20100414
  Transmission Date: 20101027
  Serious: Yes (Other)
  Sender: FDA-Public Use
  Company Number: 010202

PATIENT
  Age: 43 Year
  Sex: Male

DRUGS (5)
  1. VIMPAT [Suspect]
     Indication: EPILEPSY
     Dosage: (400 MG ORAL)
     Route: 048
     Dates: start: 20100101
  2. KEPPRA [Concomitant]
  3. CARBAMAZEPINE [Concomitant]
  4. FLUOXETINE [Concomitant]
  5. PROPRANOLOL [Concomitant]

REACTIONS (3)
  - AGITATION [None]
  - PANIC REACTION [None]
  - SPEECH DISORDER [None]
